FAERS Safety Report 4847153-9 (Version None)
Quarter: 2005Q4

REPORT INFORMATION
  Report Type: 
  Country: None (occurrence: None)
  Receive Date: 20051205
  Receipt Date: 20051121
  Transmission Date: 20060501
  Serious: Yes (Hospitalization)
  Sender: FDA-Public Use
  Company Number: 2005P1000592

PATIENT
  Age: 75 Year
  Sex: Male
  Weight: 89.8122 kg

DRUGS (1)
  1. RETEVASE [Suspect]
     Indication: CHEST PAIN
     Dosage: X1;IV
     Route: 042
     Dates: start: 20010101, end: 20010101

REACTIONS (4)
  - CHEST PAIN [None]
  - ECCHYMOSIS [None]
  - HAEMORRHAGE INTRACRANIAL [None]
  - PARKINSON'S DISEASE [None]
